FAERS Safety Report 15608707 (Version 1)
Quarter: 2018Q4

REPORT INFORMATION
  Report Type: Spontaneous
  Country: US (occurrence: US)
  Receive Date: 20181112
  Receipt Date: 20181112
  Transmission Date: 20190205
  Serious: No
  Sender: FDA-Public Use
  Company Number: US-SA-2018SA306939

PATIENT
  Age: 23 Year
  Sex: Female

DRUGS (1)
  1. TOUJEO [Suspect]
     Active Substance: INSULIN GLARGINE
     Indication: TYPE 1 DIABETES MELLITUS
     Dosage: 10 UNITS OF TOUJEO IN THE MORNING AND 4 UNITS AT NIGHT
     Route: 065
     Dates: start: 20161223

REACTIONS (2)
  - Device operational issue [Unknown]
  - Product use issue [Unknown]
